FAERS Safety Report 4819793-4 (Version None)
Quarter: 2005Q4

REPORT INFORMATION
  Report Type: 
  Country: None (occurrence: None)
  Receive Date: 20051102
  Receipt Date: 20051027
  Transmission Date: 20060501
  Serious: Yes (Death)
  Sender: FDA-Public Use
  Company Number: 163-20785-05060272

PATIENT
  Age: 45 Year
  Sex: Female

DRUGS (1)
  1. THALOMID [Suspect]
     Indication: AMYLOIDOSIS
     Dosage: 100 MG, DAILY, ORAL
     Route: 048
     Dates: start: 20050601, end: 20050101

REACTIONS (4)
  - AMYLOIDOSIS [None]
  - DISEASE PROGRESSION [None]
  - HEPATIC FAILURE [None]
  - PREGNANCY TEST FALSE POSITIVE [None]
